FAERS Safety Report 8315202-1 (Version None)
Quarter: 2012Q2

REPORT INFORMATION
  Report Type: 
  Country: None (occurrence: None)
  Receive Date: 20120426
  Receipt Date: 20120418
  Transmission Date: 20120825
  Serious: Yes (Hospitalization)
  Sender: FDA-Public Use
  Company Number: US-BAYER-2011-084587

PATIENT
  Age: 26 Year
  Sex: Female
  Weight: 73.469 kg

DRUGS (13)
  1. PENICILLIN [Concomitant]
     Dosage: UNK
     Dates: start: 19980101, end: 20090101
  2. ZITHROMAX [Concomitant]
     Dosage: UNK
     Dates: start: 19980101, end: 20090101
  3. NAPROXEN (ALEVE) [Concomitant]
     Dosage: UNK
     Dates: start: 19930101
  4. AMOXICILLIN [Concomitant]
     Dosage: UNK
     Dates: start: 19980101, end: 20090101
  5. MEFOXIN [Concomitant]
  6. YASMIN [Suspect]
     Indication: MENSTRUATION IRREGULAR
     Dosage: UNK
     Dates: start: 19980101, end: 20040101
  7. DROSPIRENONE AND ETHINYL ESTRADIOL [Suspect]
     Indication: PREMENSTRUAL SYNDROME
  8. YASMIN [Suspect]
     Indication: PREMENSTRUAL SYNDROME
  9. ZITHROMAX [Concomitant]
     Dosage: UNK
     Dates: start: 19980101, end: 20090101
  10. FLINTSTONES MULTIPLE VITAMINS [Concomitant]
     Dosage: UNK UNK, QD
     Dates: start: 20020101, end: 20060101
  11. IBUPROFEN [Concomitant]
     Dosage: UNK
     Dates: start: 19930101
  12. DROSPIRENONE AND ETHINYL ESTRADIOL [Suspect]
     Indication: MENSTRUATION IRREGULAR
     Dosage: UNK
     Dates: start: 19980101, end: 20040101
  13. LORTAB [Concomitant]

REACTIONS (9)
  - CHOLELITHIASIS [None]
  - CHOLECYSTITIS [None]
  - BACK PAIN [None]
  - GASTRIC DISORDER [None]
  - FEAR [None]
  - ANXIETY [None]
  - CHEST PAIN [None]
  - VOMITING [None]
  - EMOTIONAL DISTRESS [None]
